FAERS Safety Report 7591700-3 (Version None)
Quarter: 2011Q3

REPORT INFORMATION
  Report Type: 
  Country: None (occurrence: None)
  Receive Date: 20110706
  Receipt Date: 20110615
  Transmission Date: 20111222
  Serious: Yes (Other)
  Sender: FDA-Public Use
  Company Number: US-BAYER-201023607NA

PATIENT
  Age: 28 Year
  Sex: Female

DRUGS (9)
  1. VICODIN [Concomitant]
     Indication: MIGRAINE
     Dosage: UNK UNK, PRN
  2. YASMIN [Suspect]
     Dosage: UNK
     Dates: start: 20051025, end: 20070107
  3. YASMIN [Suspect]
     Dosage: UNK
     Dates: start: 20080101, end: 20080701
  4. YASMIN [Suspect]
     Dosage: UNK
     Dates: start: 20080129, end: 20080502
  5. PRENATAL VITAMINS [Concomitant]
     Route: 048
  6. YASMIN [Suspect]
     Indication: ORAL CONTRACEPTION
     Dosage: UNK
     Route: 048
     Dates: start: 20051001, end: 20080701
  7. YASMIN [Suspect]
     Dosage: UNK
     Dates: start: 20051001, end: 20070101
  8. PHENERGAN HCL [Suspect]
     Route: 048
  9. PROZAC [Concomitant]
     Indication: DEPRESSION
     Dosage: 80 MG, QD
     Route: 048

REACTIONS (11)
  - GENERAL PHYSICAL CONDITION ABNORMAL [None]
  - PAIN [None]
  - DYSPEPSIA [None]
  - EMOTIONAL DISTRESS [None]
  - CHOLELITHIASIS [None]
  - BILIARY COLIC [None]
  - GALLBLADDER DISORDER [None]
  - MEDICAL DIET [None]
  - INJURY [None]
  - GENERAL PHYSICAL HEALTH DETERIORATION [None]
  - ANXIETY [None]
